FAERS Safety Report 8435533-4 (Version None)
Quarter: 2012Q2

REPORT INFORMATION
  Report Type: 
  Country: None (occurrence: None)
  Receive Date: 20120608
  Receipt Date: 20120526
  Transmission Date: 20120825
  Serious: Yes (Other)
  Sender: FDA-Public Use
  Company Number: DSA_57683_2012

PATIENT

DRUGS (5)
  1. ONDANSETRON HCL [Concomitant]
  2. LEVOLEUCOVORIN CALCIUM [Suspect]
     Indication: HEPATIC NEOPLASM MALIGNANT
     Dosage: (6.25 MG, DAILY INTRA-ARTERIAL)
     Route: 013
  3. FLUOROURACIL [Suspect]
     Indication: HEPATIC NEOPLASM MALIGNANT
     Dosage: (250 MG, DAILY INTRA-ARTERIAL), (250 MG, DAILY INTRA-ARTERIAL)
     Route: 013
  4. CISPLATIN [Suspect]
     Indication: HEPATIC NEOPLASM MALIGNANT
     Dosage: (10 MG, DAILY INTRA-ARTERIAL)
     Route: 013
  5. INTRON (INTRON) (NOT SPECIFIED) [Suspect]
     Indication: HEPATIC NEOPLASM MALIGNANT
     Dosage: (3 MILLIUNIT(S) (3 TIMES WEEKLY) SUBCUTANEOUS)
     Route: 058

REACTIONS (1)
  - PYREXIA [None]
